FAERS Safety Report 13162234 (Version 1)
Quarter: 2017Q1

REPORT INFORMATION
  Report Type: Spontaneous
  Country: US (occurrence: US)
  Receive Date: 20170126
  Receipt Date: 20170126
  Transmission Date: 20170428
  Serious: Yes (Other)
  Sender: FDA-Public Use
  Company Number: None

PATIENT
  Age: 59 Year
  Sex: Male

DRUGS (4)
  1. CREST WHITENING SYSTEMS STRIPS WHITESTRIP 3D WHITE LUXE NO FLAVOR-SCENT [Suspect]
     Active Substance: HYDROGEN PEROXIDE
     Indication: DENTAL COSMETIC PROCEDURE
     Dosage: 1 APPLICATION 1/WEEK INTRAORAL
     Dates: start: 201606, end: 201608
  2. INSULIN [Concomitant]
     Active Substance: INSULIN NOS
  3. SIMVASTATIN. [Concomitant]
     Active Substance: SIMVASTATIN
  4. LOSARTAN. [Concomitant]
     Active Substance: LOSARTAN

REACTIONS (5)
  - Device failure [None]
  - Tooth injury [None]
  - Dental examination abnormal [None]
  - Tooth erosion [None]
  - Tooth discolouration [None]

NARRATIVE: CASE EVENT DATE: 20160715
